FAERS Safety Report 7446362-2 (Version None)
Quarter: 2011Q2

REPORT INFORMATION
  Report Type: 
  Country: None (occurrence: None)
  Receive Date: 20110429
  Receipt Date: 20100831
  Transmission Date: 20111010
  Serious: No
  Sender: FDA-Public Use
  Company Number: US-ASTRAZENECA-2010SE41114

PATIENT
  Sex: Female

DRUGS (1)
  1. NEXIUM [Suspect]
     Route: 048

REACTIONS (4)
  - BLOOD GLUCOSE DECREASED [None]
  - BARRETT'S OESOPHAGUS [None]
  - INCORRECT DOSE ADMINISTERED [None]
  - HYPOTENSION [None]
